FAERS Safety Report 8159750-6 (Version None)
Quarter: 2012Q1

REPORT INFORMATION
  Report Type: 
  Country: None (occurrence: None)
  Receive Date: 20120223
  Receipt Date: 20120214
  Transmission Date: 20120608
  Serious: Yes (Other)
  Sender: FDA-Public Use
  Company Number: US-JNJFOC-20120208292

PATIENT
  Age: 96 Year
  Sex: Female
  Weight: 61.24 kg

DRUGS (10)
  1. KETOCONAZOLE [Suspect]
     Route: 061
  2. KETOCONAZOLE [Suspect]
     Indication: PRURITUS
     Dosage: ALTERNATING WITH OTHERS
     Route: 061
  3. KETOCONAZOLE [Suspect]
     Route: 061
  4. DOCUSATE SODIUM [Concomitant]
     Indication: ABNORMAL FAECES
     Route: 065
  5. NEUTROGENA T-GEL [Suspect]
     Indication: PRURITUS
     Route: 061
     Dates: start: 20110201, end: 20110201
  6. ATENOLOL [Concomitant]
     Indication: HYPERTENSION
     Route: 065
  7. SELENIUM SULFIDE [Suspect]
     Indication: PRURITUS
     Route: 061
     Dates: start: 20110201, end: 20110201
  8. MECLIZINE [Concomitant]
     Indication: VERTIGO
     Route: 065
     Dates: start: 20110901
  9. PERDIEM [Concomitant]
     Indication: LAXATIVE SUPPORTIVE CARE
     Dosage: 2 PILLS EACH NIGHT SINCE 15 YEARS
     Route: 065
  10. ACIPHEX [Interacting]
     Indication: HYPERCHLORHYDRIA
     Route: 065

REACTIONS (4)
  - EXPIRED DRUG ADMINISTERED [None]
  - RASH PRURITIC [None]
  - DRUG INTERACTION [None]
  - HAIR TEXTURE ABNORMAL [None]
